FAERS Safety Report 4337876-2 (Version None)
Quarter: 2004Q1

REPORT INFORMATION
  Report Type: 
  Country: None (occurrence: None)
  Receive Date: 20040329
  Receipt Date: 20040220
  Transmission Date: 20041129
  Serious: No
  Sender: FDA-Public Use
  Company Number: USA040259985

PATIENT
  Age: 15 Year
  Sex: Male
  Weight: 66 kg

DRUGS (1)
  1. STRATTERA [Suspect]
     Dosage: 40 MG IN THE EVENING
     Dates: start: 20040217

REACTIONS (3)
  - INSOMNIA [None]
  - MIDDLE INSOMNIA [None]
  - SLEEP DISORDER [None]
